FAERS Safety Report 7474259-0 (Version None)
Quarter: 2011Q2

REPORT INFORMATION
  Report Type: 
  Country: None (occurrence: None)
  Receive Date: 20110511
  Receipt Date: 20110503
  Transmission Date: 20111010
  Serious: Yes (Hospitalization)
  Sender: FDA-Public Use
  Company Number: US-RB-022226-11

PATIENT
  Age: 29 Year
  Sex: Female

DRUGS (1)
  1. SUBOXONE [Suspect]
     Indication: PRODUCT USED FOR UNKNOWN INDICATION
     Dosage: DOSAGE INFORMATION UNKNOWN- SUBLINGUAL FILM
     Route: 065
     Dates: end: 20110409

REACTIONS (21)
  - DECREASED APPETITE [None]
  - NAUSEA [None]
  - MYALGIA [None]
  - UTERINE DISORDER [None]
  - UNDERDOSE [None]
  - IRRITABILITY [None]
  - CONSTIPATION [None]
  - DENTAL DISCOMFORT [None]
  - ANGER [None]
  - BACK PAIN [None]
  - PRE-EXISTING CONDITION IMPROVED [None]
  - THERAPEUTIC RESPONSE UNEXPECTED [None]
  - CRYING [None]
  - ABNORMAL LOSS OF WEIGHT [None]
  - CONDITION AGGRAVATED [None]
  - ANXIETY [None]
  - PYREXIA [None]
  - DIZZINESS [None]
  - DRUG WITHDRAWAL SYNDROME [None]
  - INCISION SITE COMPLICATION [None]
  - INSOMNIA [None]
